FAERS Safety Report 7597363-5 (Version None)
Quarter: 2011Q3

REPORT INFORMATION
  Report Type: 
  Country: None (occurrence: None)
  Receive Date: 20110708
  Receipt Date: 20110707
  Transmission Date: 20111222
  Serious: Yes (Death)
  Sender: FDA-Public Use
  Company Number: IT-SANOFI-AVENTIS-2011SA042902

PATIENT
  Age: 63 Year
  Sex: Male

DRUGS (1)
  1. TAXOTERE [Suspect]
     Indication: PROSTATE CANCER
     Route: 041
     Dates: start: 20110526, end: 20110526

REACTIONS (4)
  - ASTHENIA [None]
  - ARTHRALGIA [None]
  - DEATH [None]
  - DIARRHOEA [None]
